FAERS Safety Report 8118336-X (Version None)
Quarter: 2012Q1

REPORT INFORMATION
  Report Type: 
  Country: None (occurrence: None)
  Receive Date: 20120207
  Receipt Date: 20120202
  Transmission Date: 20120608
  Serious: Yes (Death, Other)
  Sender: FDA-Public Use
  Company Number: JP-PFIZER INC-2012026693

PATIENT
  Age: 71 Year
  Sex: Male

DRUGS (3)
  1. CEREBID [Suspect]
     Dosage: 16 ML, DAILY
     Route: 048
     Dates: start: 20111213, end: 20120121
  2. PLAVIX [Concomitant]
     Dosage: 75 MG, DAILY
     Route: 048
     Dates: start: 20111214, end: 20120118
  3. LIPITOR [Suspect]
     Dosage: 10 MG, DAILY
     Route: 048
     Dates: start: 20111213, end: 20120121

REACTIONS (2)
  - STEVENS-JOHNSON SYNDROME [None]
  - EPISTAXIS [None]
